FAERS Safety Report 7575996-X (Version None)
Quarter: 2011Q2

REPORT INFORMATION
  Report Type: 
  Country: None (occurrence: None)
  Receive Date: 20110628
  Receipt Date: 20110607
  Transmission Date: 20111010
  Serious: Yes (Death, Life-Threatening)
  Sender: FDA-Public Use
  Company Number: AT-BAYER-2011-039444

PATIENT
  Age: 51 Year
  Sex: Male

DRUGS (4)
  1. SORAFENIB (RAF KINASE INHIBITOR) [Suspect]
     Indication: METASTATIC RENAL CELL CARCINOMA
     Dosage: UNK
     Route: 048
     Dates: start: 20110429, end: 20110504
  2. CORTISONE ACETATE [Concomitant]
     Dosage: 2+8 MG PER DAY
     Dates: start: 20110505, end: 20110529
  3. DEXAMETHASONE SODIUM POSPHATE [Concomitant]
  4. FORTISON [Concomitant]
     Dosage: 8 MG, BID
     Dates: start: 20110505, end: 20110529

REACTIONS (3)
  - METASTASES TO CENTRAL NERVOUS SYSTEM [None]
  - CEREBRAL HAEMORRHAGE [None]
  - TUMOUR HAEMORRHAGE [None]
